FAERS Safety Report 19275362 (Version 2)
Quarter: 2021Q2

REPORT INFORMATION
  Report Type: Spontaneous
  Country: US (occurrence: US)
  Receive Date: 20210519
  Receipt Date: 20210617
  Transmission Date: 20210717
  Serious: No
  Sender: FDA-Public Use
  Company Number: US-ASTRAZENECA-2021A439735

PATIENT
  Age: 27572 Day
  Sex: Female
  Weight: 74.8 kg

DRUGS (5)
  1. VITAMIN D3 [Concomitant]
     Active Substance: CHOLECALCIFEROL
  2. ALBUTEROL. [Concomitant]
     Active Substance: ALBUTEROL
  3. SYMBICORT [Suspect]
     Active Substance: BUDESONIDE\FORMOTEROL FUMARATE DIHYDRATE
     Indication: DYSPNOEA
     Dosage: 160 UG, EVERY 12 HOURS
     Route: 055
  4. VITAMIN [Concomitant]
     Active Substance: VITAMINS
  5. SYMBICORT [Suspect]
     Active Substance: BUDESONIDE\FORMOTEROL FUMARATE DIHYDRATE
     Indication: CHRONIC OBSTRUCTIVE PULMONARY DISEASE
     Dosage: 160 UG, EVERY 12 HOURS
     Route: 055

REACTIONS (4)
  - Wrong technique in device usage process [Not Recovered/Not Resolved]
  - Fungal infection [Not Recovered/Not Resolved]
  - Product dose omission issue [Unknown]
  - Headache [Unknown]

NARRATIVE: CASE EVENT DATE: 20210512
